FAERS Safety Report 12570101 (Version 1)
Quarter: 2016Q3

REPORT INFORMATION
  Report Type: Spontaneous
  Country: US (occurrence: None)
  Receive Date: 20160718
  Receipt Date: 20160718
  Transmission Date: 20161109
  Serious: No
  Sender: FDA-Public Use
  Company Number: None

PATIENT
  Age: 46 Year
  Sex: Male
  Weight: 107.05 kg

DRUGS (7)
  1. MOMETASONE NASAL SPRAY, 50 MCG [Suspect]
     Active Substance: MOMETASONE
     Indication: PULMONARY CONGESTION
     Dosage: 1 SPRAY ONCE A DAY INTRANASAL
  2. LEXAPRO [Concomitant]
     Active Substance: ESCITALOPRAM OXALATE
  3. LOPRESSOR [Concomitant]
     Active Substance: METOPROLOL TARTRATE
  4. PREVACID [Concomitant]
     Active Substance: LANSOPRAZOLE
  5. MOMETASONE NASAL SPRAY, 50 MCG [Suspect]
     Active Substance: MOMETASONE
     Indication: MULTIPLE ALLERGIES
     Dosage: 1 SPRAY ONCE A DAY INTRANASAL
  6. KLONOPIN [Concomitant]
     Active Substance: CLONAZEPAM
  7. MAGNESIUM [Concomitant]
     Active Substance: MAGNESIUM

REACTIONS (2)
  - Insomnia [None]
  - Depression [None]

NARRATIVE: CASE EVENT DATE: 20160714
